FAERS Safety Report 13118315 (Version 1)
Quarter: 2017Q1

REPORT INFORMATION
  Report Type: Spontaneous
  Country: US (occurrence: US)
  Receive Date: 20170116
  Receipt Date: 20170116
  Transmission Date: 20170428
  Serious: No
  Sender: FDA-Public Use
  Company Number: US-BRISTOL-MYERS SQUIBB COMPANY-BMS-2017-001848

PATIENT
  Age: 67 Year
  Sex: Male

DRUGS (1)
  1. IPILIMUMAB [Suspect]
     Active Substance: IPILIMUMAB
     Indication: MALIGNANT MELANOMA
     Dosage: 3 MG/KG, UNK
     Route: 065
     Dates: start: 201403, end: 201407

REACTIONS (5)
  - Alanine aminotransferase increased [Unknown]
  - Transaminases increased [Unknown]
  - Aspartate aminotransferase increased [Unknown]
  - Product use issue [Unknown]
  - Blood alkaline phosphatase increased [Unknown]
